FAERS Safety Report 21487278 (Version 2)
Quarter: 2022Q4

REPORT INFORMATION
  Report Type: Report from Study
  Country: US (occurrence: US)
  Receive Date: 20221020
  Receipt Date: 20221121
  Transmission Date: 20230113
  Serious: Yes (Other)
  Sender: FDA-Public Use
  Company Number: US-GLAXOSMITHKLINE-US2022039809

PATIENT

DRUGS (4)
  1. NIRAPARIB [Suspect]
     Active Substance: NIRAPARIB
     Indication: Ovarian cancer
     Dosage: 100 MG, QD
     Dates: start: 202001
  2. NIRAPARIB [Suspect]
     Active Substance: NIRAPARIB
     Dosage: 200 MG, QD
     Dates: start: 20201020, end: 20220302
  3. NIRAPARIB [Suspect]
     Active Substance: NIRAPARIB
     Dosage: 200 MG, QD
  4. MAGNESIUM [Concomitant]
     Active Substance: MAGNESIUM
     Indication: Product used for unknown indication
     Dosage: UNK

REACTIONS (33)
  - Pulmonary fibrosis [Unknown]
  - Constipation [Not Recovered/Not Resolved]
  - Palpitations [Recovering/Resolving]
  - COVID-19 [Unknown]
  - Fatigue [Unknown]
  - Abdominal distension [Unknown]
  - Dyspareunia [Unknown]
  - Back pain [Recovered/Resolved]
  - Hypersensitivity [Unknown]
  - Granuloma [Unknown]
  - Bronchitis [Unknown]
  - Spinal osteoarthritis [Unknown]
  - Cyst [Unknown]
  - Faeces hard [Unknown]
  - Pelvic mass [Unknown]
  - Haematuria [Unknown]
  - Abdominal pain [Unknown]
  - Atrophic vulvovaginitis [Recovering/Resolving]
  - Granuloma [Unknown]
  - Glomerular filtration rate decreased [Unknown]
  - Blood creatinine increased [Unknown]
  - Blood glucose increased [Unknown]
  - Lymphocyte count decreased [Unknown]
  - Basophil count increased [Unknown]
  - Mean platelet volume decreased [Unknown]
  - Mean cell haemoglobin increased [Unknown]
  - Mean cell volume increased [Unknown]
  - Haematocrit decreased [Unknown]
  - Red blood cell count decreased [Unknown]
  - White blood cell count decreased [Unknown]
  - Haemorrhoids [Unknown]
  - Rhinorrhoea [Unknown]
  - Product dose omission issue [Recovered/Resolved]

NARRATIVE: CASE EVENT DATE: 20211101
